FAERS Safety Report 4894122-9 (Version None)
Quarter: 2006Q1

REPORT INFORMATION
  Report Type: 
  Country: None (occurrence: None)
  Receive Date: 20060127
  Receipt Date: 20050804
  Transmission Date: 20060701
  Serious: No
  Sender: FDA-Public Use
  Company Number: S05-USA-03669-01

PATIENT
  Age: 32 Year
  Sex: Male

DRUGS (2)
  1. WELLBUTRIN [Suspect]
     Indication: LIBIDO DECREASED
     Route: 048
     Dates: start: 20050712, end: 20050718
  2. LEXAPRO [Suspect]
     Indication: AGITATION
     Dosage: 20MG PER DAY
     Route: 048
     Dates: start: 20050401, end: 20050718

REACTIONS (6)
  - DIZZINESS [None]
  - DRUG WITHDRAWAL SYNDROME [None]
  - HEADACHE [None]
  - LIBIDO DECREASED [None]
  - NAUSEA [None]
  - RASH GENERALISED [None]
